FAERS Safety Report 5077888-7 (Version None)
Quarter: 2006Q3

REPORT INFORMATION
  Report Type: 
  Country: None (occurrence: None)
  Receive Date: 20060720
  Receipt Date: 20050726
  Transmission Date: 20061208
  Serious: Yes (Hospitalization)
  Sender: FDA-Public Use
  Company Number: 05USA0149

PATIENT
  Age: 64 Year
  Sex: Female
  Weight: 126 kg

DRUGS (7)
  1. AGGRASTAT [Suspect]
     Indication: CORONARY ANGIOPLASTY
     Dosage: 25 UG/KG BOLUS; 0.15 G/KG/MIN MAINTENANCE
     Route: 040
     Dates: start: 20050411, end: 20050411
  2. PLACEBO FOR TIROFIBAN (PLACEBO) (INJECTION) [Suspect]
     Indication: CORONARY ANGIOPLASTY
     Dosage: DF
     Dates: start: 20050411, end: 20050411
  3. ABCIXIMAB (ABCIXIMAB) (INJECTION) [Suspect]
     Indication: CORONARY ANGIOPLASTY
     Dosage: .25 MG/KG BOLUS; 0.125 UG/KG/MIN MAINTENANCE
     Route: 040
     Dates: start: 20050411, end: 20050411
  4. PLACEBO FOR ABCIXIMAB (PLACEBO) (INJECTION) [Suspect]
     Indication: CORONARY ANGIOPLASTY
     Dosage: DF
     Dates: start: 20050411, end: 20050411
  5. BIVALIRUDIN (BIVALIRUDIN) (INJECTION) [Suspect]
     Indication: CORONARY ANGIOPLASTY
     Dosage: 0.75 MG/KG ; 1.75 MG/KG/H
     Dates: start: 20050411, end: 20050411
  6. HEPARIN [Suspect]
     Indication: CORONARY ANGIOPLASTY
     Dosage: 50 U/KG BOLUS WITH REPEAT
     Route: 040
     Dates: start: 20050411, end: 20050411
  7. ASPIRIN [Concomitant]

REACTIONS (1)
  - ACUTE MYOCARDIAL INFARCTION [None]
